FAERS Safety Report 23586266 (Version 1)
Quarter: 2024Q1

REPORT INFORMATION
  Report Type: Spontaneous
  Country: US (occurrence: None)
  Receive Date: 20240301
  Receipt Date: 20240301
  Transmission Date: 20240410
  Serious: No
  Sender: FDA-Public Use
  Company Number: None

PATIENT
  Age: 44 Year
  Sex: Female
  Weight: 96.75 kg

DRUGS (2)
  1. XIIDRA [Suspect]
     Active Substance: LIFITEGRAST
     Dates: start: 20240215, end: 20240227
  2. UNSPECIFIED INGREDIENT [Concomitant]
     Active Substance: UNSPECIFIED INGREDIENT

REACTIONS (10)
  - Eye irritation [None]
  - Paraesthesia [None]
  - Parosmia [None]
  - Dysgeusia [None]
  - Eyelid exfoliation [None]
  - Headache [None]
  - Eyelid oedema [None]
  - Paranasal sinus inflammation [None]
  - Vision blurred [None]
  - Burning sensation [None]

NARRATIVE: CASE EVENT DATE: 20240227
